FAERS Safety Report 21636770 (Version 1)
Quarter: 2022Q4

REPORT INFORMATION
  Report Type: Spontaneous
  Country: AU (occurrence: AU)
  Receive Date: 20221124
  Receipt Date: 20221124
  Transmission Date: 20230113
  Serious: No
  Sender: FDA-Public Use
  Company Number: AU-ALKEM LABORATORIES LIMITED-AU-ALKEM-2022-08460

PATIENT
  Age: 35 Year
  Sex: Female

DRUGS (5)
  1. CLOZAPINE [Suspect]
     Active Substance: CLOZAPINE
     Indication: Product used for unknown indication
     Dosage: UNK
     Route: 065
  2. CHOLECALCIFEROL [Suspect]
     Active Substance: CHOLECALCIFEROL
     Indication: Product used for unknown indication
     Dosage: UNK
     Route: 065
  3. METFORMIN HYDROCHLORIDE [Suspect]
     Active Substance: METFORMIN HYDROCHLORIDE
     Indication: Product used for unknown indication
     Dosage: UNK
     Route: 065
  4. OLANZAPINE [Suspect]
     Active Substance: OLANZAPINE
     Indication: Product used for unknown indication
     Dosage: UNK
     Route: 065
  5. CLOZAPINE [Suspect]
     Active Substance: CLOZAPINE
     Indication: Product used for unknown indication
     Dosage: UNK
     Route: 065

REACTIONS (22)
  - Antipsychotic drug level above therapeutic [Unknown]
  - Blood albumin increased [Unknown]
  - Blood bilirubin increased [Unknown]
  - Blood creatine phosphokinase increased [Unknown]
  - Cardiac disorder [Unknown]
  - C-reactive protein increased [Unknown]
  - Dyslipidaemia [Unknown]
  - Gamma-glutamyltransferase increased [Unknown]
  - High density lipoprotein decreased [Unknown]
  - Hunger [Unknown]
  - Mean cell haemoglobin decreased [Unknown]
  - Mean cell volume decreased [Unknown]
  - Nocturia [Unknown]
  - Overweight [Unknown]
  - Pain in extremity [Unknown]
  - Pollakiuria [Unknown]
  - Salivary hypersecretion [Unknown]
  - Sinus tachycardia [Unknown]
  - Somnolence [Unknown]
  - Thirst [Unknown]
  - Vision blurred [Unknown]
  - Vitamin D decreased [Unknown]
